FAERS Safety Report 6530167-0 (Version None)
Quarter: 2010Q1

REPORT INFORMATION
  Report Type: 
  Country: None (occurrence: None)
  Receive Date: 20100107
  Receipt Date: 20100106
  Transmission Date: 20100710
  Serious: Yes (Death)
  Sender: FDA-Public Use
  Company Number: JP-EISAI INC.-E2020-05831-CLI-JP

PATIENT
  Sex: Female

DRUGS (6)
  1. ARICEPT [Suspect]
     Indication: DEMENTIA WITH LEWY BODIES
     Route: 048
     Dates: start: 20090108, end: 20090121
  2. ARICEPT [Suspect]
     Route: 048
     Dates: start: 20090122, end: 20091220
  3. FERROMIA [Suspect]
     Dosage: 50MG X1
     Route: 048
     Dates: end: 20091220
  4. PREMINENT [Suspect]
     Indication: HYPERTENSION
     Dosage: 1 DF X1
     Route: 048
     Dates: end: 20091220
  5. LENDORMIN D [Suspect]
     Indication: DEMENTIA WITH LEWY BODIES
     Dosage: 0.25MG X1
     Route: 048
     Dates: end: 20091220
  6. ENSURE [Suspect]
     Indication: NUTRITIONAL SUPPORT
     Dosage: 1 CAN
     Route: 048
     Dates: start: 20090304, end: 20091220

REACTIONS (1)
  - PANCREATITIS ACUTE [None]
